FAERS Safety Report 16834631 (Version 5)
Quarter: 2020Q2

REPORT INFORMATION
  Report Type: Spontaneous
  Country: US (occurrence: US)
  Receive Date: 20190920
  Receipt Date: 20200617
  Transmission Date: 20200713
  Serious: Yes (Hospitalization)
  Sender: FDA-Public Use
  Company Number: US-TEVA-2019-US-1111368

PATIENT
  Age: 61 Year
  Sex: Female

DRUGS (38)
  1. PRAMIPEXOLE. [Concomitant]
     Active Substance: PRAMIPEXOLE
     Dates: start: 20130613
  2. CLONIDINE. [Concomitant]
     Active Substance: CLONIDINE
     Dates: start: 20200116
  3. CLINDAMYCIN. [Concomitant]
     Active Substance: CLINDAMYCIN
  4. COPAXONE [Suspect]
     Active Substance: GLATIRAMER ACETATE
     Dates: start: 20130613
  5. CYMBALTA [Concomitant]
     Active Substance: DULOXETINE HYDROCHLORIDE
     Dates: start: 20130703
  6. ULTRAM ER [Concomitant]
     Active Substance: TRAMADOL HYDROCHLORIDE
     Dates: start: 20130613
  7. HALOBETASOL [Concomitant]
     Active Substance: HALOBETASOL PROPIONATE
     Dates: start: 20190712
  8. ATORVASTATIN [Concomitant]
     Active Substance: ATORVASTATIN
     Dates: start: 20191112
  9. CENTANY OIN [Concomitant]
  10. HORIZANT [Concomitant]
     Active Substance: GABAPENTIN ENACARBIL
     Dosage: 300 MG
     Dates: start: 20180202
  11. METOPROL SUC [Concomitant]
     Dates: start: 20191206
  12. METOPROL SUC [Concomitant]
     Dates: start: 20191212
  13. METOPROL SUC [Concomitant]
     Dates: start: 20200109
  14. AMOXACILLIN [Concomitant]
  15. AMLODIPINE [Concomitant]
     Active Substance: AMLODIPINE BESYLATE
     Dates: start: 20130910
  16. CYANOCABALAM [Concomitant]
     Dates: start: 20130613
  17. DULOXETINE. [Concomitant]
     Active Substance: DULOXETINE
     Dates: start: 20190806
  18. METOPROL SUC [Concomitant]
     Dates: start: 20200108
  19. OXYBUTYNIN. [Concomitant]
     Active Substance: OXYBUTYNIN CHLORIDE
     Dates: start: 20190521
  20. OXYBUTYNIN. [Concomitant]
     Active Substance: OXYBUTYNIN CHLORIDE
     Dates: start: 20130613
  21. BENAZEPRIL [Concomitant]
     Active Substance: BENAZEPRIL HYDROCHLORIDE
     Dates: start: 20190801
  22. BENAZEPRIL [Concomitant]
     Active Substance: BENAZEPRIL HYDROCHLORIDE
     Dates: start: 20190726, end: 20200122
  23. HORIZANT [Concomitant]
     Active Substance: GABAPENTIN ENACARBIL
     Dosage: 300 MG, END DATE: 09-MAR-2020
     Dates: start: 20191007
  24. METOPROL SUC [Concomitant]
     Dates: start: 20200113
  25. NUEDEXTA [Concomitant]
     Active Substance: DEXTROMETHORPHAN HYDROBROMIDE\QUINIDINE SULFATE
     Dosage: 20 MG TO 10 MG
     Dates: start: 20191104
  26. DICLOXACILL [Concomitant]
  27. BENAZEPRIL AND HYDROCHLOROTHIAZIDE [Concomitant]
     Active Substance: BENAZEPRIL HYDROCHLORIDE\HYDROCHLOROTHIAZIDE
     Dosage: DOSE: 20 TO 12.5
     Dates: start: 20130613
  28. VITAMIN D [Concomitant]
     Active Substance: VITAMIN D NOS
     Dosage: 1000 UNITS
     Dates: start: 20130613
  29. COPAXONE [Suspect]
     Active Substance: GLATIRAMER ACETATE
     Indication: MULTIPLE SCLEROSIS
     Route: 058
     Dates: start: 20170727
  30. CEPHALEXIN. [Concomitant]
     Active Substance: CEPHALEXIN
     Dates: start: 20200116
  31. CYANOCABALAM [Concomitant]
     Dates: start: 20191009
  32. LEVOTHYROXINE. [Concomitant]
     Active Substance: LEVOTHYROXINE
     Dates: start: 20130613
  33. MIRAPEX [Concomitant]
     Active Substance: PRAMIPEXOLE DIHYDROCHLORIDE
     Dates: start: 20130703
  34. PRAMIPEXOLE. [Concomitant]
     Active Substance: PRAMIPEXOLE
     Dates: start: 20200105
  35. COPAXONE [Suspect]
     Active Substance: GLATIRAMER ACETATE
     Route: 058
     Dates: start: 20151220
  36. ATORVASTATIN [Concomitant]
     Active Substance: ATORVASTATIN
     Dates: start: 20191107
  37. ATORVASTATIN [Concomitant]
     Active Substance: ATORVASTATIN
     Dates: start: 20130613
  38. LEVOTHYROXINE. [Concomitant]
     Active Substance: LEVOTHYROXINE
     Dates: start: 20190521

REACTIONS (6)
  - Cellulitis [Not Recovered/Not Resolved]
  - Muscular weakness [Not Recovered/Not Resolved]
  - Foot fracture [Not Recovered/Not Resolved]
  - Movement disorder [Not Recovered/Not Resolved]
  - Memory impairment [Not Recovered/Not Resolved]
  - Bladder disorder [Not Recovered/Not Resolved]

NARRATIVE: CASE EVENT DATE: 201912
